FAERS Safety Report 9836898 (Version 1)
Quarter: 2014Q1

REPORT INFORMATION
  Report Type: Spontaneous
  Country: US (occurrence: US)
  Receive Date: 20140123
  Receipt Date: 20140123
  Transmission Date: 20141002
  Serious: No
  Sender: FDA-Public Use
  Company Number: US-PFIZER INC-2014018682

PATIENT
  Age: 61 Year
  Sex: Female

DRUGS (4)
  1. DILANTIN [Suspect]
     Dosage: UNK
  2. TAGAMET [Suspect]
     Dosage: UNK
  3. ASA [Suspect]
     Dosage: UNK
  4. CODEINE [Suspect]
     Dosage: UNK

REACTIONS (1)
  - Drug hypersensitivity [Unknown]
